FAERS Safety Report 15126734 (Version 1)
Quarter: 2018Q3

REPORT INFORMATION
  Report Type: Spontaneous
  Country: GB (occurrence: GB)
  Receive Date: 20180710
  Receipt Date: 20180710
  Transmission Date: 20181010
  Serious: Yes (Disabling)
  Sender: FDA-Public Use
  Company Number: GB-TEVA-2018-GB-923328

PATIENT
  Age: 52 Year
  Sex: Male
  Weight: 84 kg

DRUGS (1)
  1. OMEPRAZOLE. [Suspect]
     Active Substance: OMEPRAZOLE
     Dosage: 20 MILLIGRAM DAILY;
     Route: 048
     Dates: start: 2014, end: 20180519

REACTIONS (7)
  - Libido decreased [Recovering/Resolving]
  - Muscle disorder [Unknown]
  - Erectile dysfunction [Recovered/Resolved]
  - Ejaculation failure [Recovering/Resolving]
  - Myalgia [Unknown]
  - Weight loss poor [Unknown]
  - Anorgasmia [Recovering/Resolving]
